FAERS Safety Report 5523641-7 (Version None)
Quarter: 2007Q4

REPORT INFORMATION
  Report Type: 
  Country: None (occurrence: None)
  Receive Date: 20071121
  Receipt Date: 20071120
  Transmission Date: 20080405
  Serious: Yes (Life-Threatening, Other)
  Sender: FDA-Public Use
  Company Number: JP-SANOFI-SYNTHELABO-F01200701391

PATIENT
  Sex: Female

DRUGS (9)
  1. ALDACTONE [Concomitant]
     Dosage: UNK
     Dates: start: 20070829
  2. LASIX [Concomitant]
     Dosage: UNK
     Dates: start: 20070829
  3. FAMOTIDINE [Concomitant]
     Dosage: UNK
     Dates: start: 20070820
  4. NAPROXEN [Concomitant]
     Dosage: UNK
  5. BEVACIZUMAB [Suspect]
     Route: 042
     Dates: start: 20071024, end: 20071024
  6. ISOVORIN [Suspect]
     Dosage: UNK
     Route: 042
     Dates: start: 20071024, end: 20071025
  7. IRINOTECAN HCL [Concomitant]
     Dosage: UNK
     Route: 042
     Dates: start: 20071010, end: 20071024
  8. FLUOROURACIL [Suspect]
     Dosage: UNK
     Route: 042
     Dates: start: 20071024, end: 20071025
  9. OXALIPLATIN [Suspect]
     Indication: RECTAL CANCER METASTATIC
     Route: 042
     Dates: start: 20070912, end: 20070912

REACTIONS (3)
  - GASTROINTESTINAL PERFORATION [None]
  - HAEMOLYTIC ANAEMIA [None]
  - LEUKOPENIA [None]
